FAERS Safety Report 21856388 (Version 1)
Quarter: 2023Q1

REPORT INFORMATION
  Report Type: Spontaneous
  Country: CA (occurrence: CA)
  Receive Date: 20230112
  Receipt Date: 20230112
  Transmission Date: 20230418
  Serious: Yes (Other)
  Sender: FDA-Public Use
  Company Number: CA-PFIZER INC-202300004718

PATIENT
  Age: 62 Year
  Sex: Male

DRUGS (7)
  1. METHOTREXATE SODIUM [Suspect]
     Active Substance: METHOTREXATE SODIUM
     Indication: Rheumatoid arthritis
     Dosage: 1 DF
     Route: 065
  2. METHOTREXATE SODIUM [Suspect]
     Active Substance: METHOTREXATE SODIUM
     Dosage: 25 MG, WEEKLY
     Route: 058
  3. ACETAMINOPHEN [Concomitant]
     Active Substance: ACETAMINOPHEN
     Dosage: 500 MG
  4. LEFLUNOMIDE [Concomitant]
     Active Substance: LEFLUNOMIDE
     Dosage: 20 MG, DAILY
     Route: 048
  5. VITAMIN D NOS [Concomitant]
     Active Substance: VITAMIN D NOS
     Dosage: 2000 IU
  6. CALCIUM [Concomitant]
     Active Substance: CALCIUM
     Dosage: 1200 ONCE DAILY
  7. PREDNISONE [Concomitant]
     Active Substance: PREDNISONE
     Dosage: 9 MG

REACTIONS (5)
  - Rheumatoid arthritis [Unknown]
  - Off label use [Unknown]
  - Pyrexia [Not Recovered/Not Resolved]
  - Multiple drug therapy [Unknown]
  - Pain [Unknown]
